FAERS Safety Report 11882536 (Version 1)
Quarter: 2015Q4

REPORT INFORMATION
  Report Type: Spontaneous
  Country: CN (occurrence: CN)
  Receive Date: 20151231
  Receipt Date: 20151231
  Transmission Date: 20160305
  Serious: Yes (Other)
  Sender: FDA-Public Use
  Company Number: CN-SUN PHARMACEUTICAL INDUSTRIES LTD-2015RR-106317

PATIENT

DRUGS (4)
  1. BUPIVACAINE [Concomitant]
     Active Substance: BUPIVACAINE
     Indication: ANAESTHESIA
     Dosage: 6 ML, UNK
     Route: 065
  2. PROPOFOL. [Concomitant]
     Active Substance: PROPOFOL
     Indication: ANAESTHESIA PROCEDURE
     Dosage: 50 MG, UNK
     Route: 042
  3. TRAMADOL. [Suspect]
     Active Substance: TRAMADOL
     Indication: CHILLS
     Dosage: 100 MG, UNK
     Route: 042
  4. ONDASETRON [Concomitant]
     Active Substance: ONDANSETRON
     Indication: CHILLS
     Dosage: 8 MG, UNK
     Route: 042

REACTIONS (5)
  - Gaze palsy [Recovered/Resolved]
  - Dyspraxia [Recovered/Resolved]
  - Vision blurred [Recovered/Resolved]
  - Seizure [Recovered/Resolved]
  - Loss of consciousness [Recovered/Resolved]
